FAERS Safety Report 10021109 (Version 1)
Quarter: 2014Q1

REPORT INFORMATION
  Report Type: Spontaneous
  Country: US (occurrence: None)
  Receive Date: 20140318
  Receipt Date: 20140318
  Transmission Date: 20141002
  Serious: Yes (Other)
  Sender: FDA-Public Use
  Company Number: None

PATIENT
  Age: 43 Year
  Sex: Female
  Weight: 100.7 kg

DRUGS (1)
  1. MIRENA [Suspect]

REACTIONS (5)
  - Weight increased [None]
  - Arthralgia [None]
  - Palpitations [None]
  - Impaired work ability [None]
  - Premature ageing [None]
